FAERS Safety Report 6297220-0 (Version None)
Quarter: 2009Q3

REPORT INFORMATION
  Report Type: 
  Country: None (occurrence: None)
  Receive Date: 20090804
  Receipt Date: 20090804
  Transmission Date: 20100115
  Serious: No
  Sender: FDA-Public Use
  Company Number: None

PATIENT
  Age: 84 Year
  Weight: 74.3899 kg

DRUGS (1)
  1. AZITHROMYCIN [Suspect]
     Indication: BRONCHITIS
     Dosage: 2 TAB 1ST DAY
     Dates: start: 20090717, end: 20090718

REACTIONS (5)
  - DEAFNESS [None]
  - DYSPHAGIA [None]
  - DYSPHONIA [None]
  - THROAT IRRITATION [None]
  - TINNITUS [None]
